FAERS Safety Report 7825659-8 (Version None)
Quarter: 2011Q4

REPORT INFORMATION
  Report Type: 
  Country: None (occurrence: None)
  Receive Date: 20111014
  Receipt Date: 20110930
  Transmission Date: 20120403
  Serious: Yes (Other)
  Sender: FDA-Public Use
  Company Number: 2011AP002294

PATIENT
  Age: 34 Year
  Sex: Female

DRUGS (3)
  1. VALPROIC ACID [Concomitant]
  2. TOPIRAMATE [Suspect]
     Indication: COMPLEX PARTIAL SEIZURES
     Dosage: 200 MG;UNKNOWN, 300 MG;UNKNOWN
  3. CARBAMAZEPINE [Concomitant]

REACTIONS (4)
  - MYOCLONUS [None]
  - DROP ATTACKS [None]
  - CONVERSION DISORDER [None]
  - SPEECH DISORDER [None]
